FAERS Safety Report 4685125-8 (Version None)
Quarter: 2005Q2

REPORT INFORMATION
  Report Type: 
  Country: None (occurrence: None)
  Receive Date: 20050608
  Receipt Date: 20050203
  Transmission Date: 20051028
  Serious: Yes (Other)
  Sender: FDA-Public Use
  Company Number: IT-NOVOPROD-242141

PATIENT
  Age: 61 Year
  Sex: Male
  Weight: 83 kg

DRUGS (2)
  1. NOVOSEVEN [Suspect]
     Indication: POST PROCEDURAL HAEMORRHAGE
     Dosage: 40 UG, SINGLE
     Route: 042
     Dates: start: 20050125, end: 20050125
  2. CEFAZOLIN [Concomitant]
     Dosage: 4 G, QD
     Route: 042
     Dates: start: 20050125, end: 20050125

REACTIONS (1)
  - MYOCARDIAL ISCHAEMIA [None]
